FAERS Safety Report 9443391 (Version 2)
Quarter: 2013Q3

REPORT INFORMATION
  Report Type: Spontaneous
  Country: JP (occurrence: JP)
  Receive Date: 20130806
  Receipt Date: 20130911
  Transmission Date: 20140515
  Serious: Yes (Other)
  Sender: FDA-Public Use
  Company Number: JP-GLAXOSMITHKLINE-B0908308A

PATIENT
  Age: 69 Year
  Sex: Female

DRUGS (6)
  1. SERETIDE (50MCG/250MCG) [Suspect]
     Indication: ASTHMA
     Dosage: 250MCG TWICE PER DAY
     Route: 055
     Dates: start: 20130411, end: 20130501
  2. CARELOAD LA [Concomitant]
     Dosage: 120MG TWICE PER DAY
     Route: 048
  3. PREDNISOLONE [Concomitant]
     Dosage: 15MG PER DAY
     Route: 048
  4. ACECOL [Concomitant]
     Dosage: 1MG PER DAY
     Route: 048
  5. NEXIUM [Concomitant]
     Dosage: 20MG PER DAY
     Route: 048
  6. JUVELA N [Concomitant]
     Dosage: 100MG THREE TIMES PER DAY
     Route: 048

REACTIONS (7)
  - Cardiac failure congestive [Recovered/Resolved]
  - Hypertrophic cardiomyopathy [Recovering/Resolving]
  - Left ventricle outflow tract obstruction [Recovering/Resolving]
  - Dizziness postural [Recovering/Resolving]
  - Oedema peripheral [Recovering/Resolving]
  - Hypotension [Recovered/Resolved]
  - Dizziness [Recovering/Resolving]
